FAERS Safety Report 6657190-X (Version None)
Quarter: 2010Q1

REPORT INFORMATION
  Report Type: 
  Country: None (occurrence: None)
  Receive Date: 20100317
  Receipt Date: 20100113
  Transmission Date: 20100710
  Serious: No
  Sender: FDA-Public Use
  Company Number: DSA_33087_2009

PATIENT
  Sex: Male

DRUGS (11)
  1. XENAZINE [Suspect]
     Indication: TOURETTE'S DISORDER
     Dosage: SEE IMAGE
     Route: 048
     Dates: start: 20090101, end: 20090101
  2. XENAZINE [Suspect]
     Indication: TOURETTE'S DISORDER
     Dosage: SEE IMAGE
     Route: 048
     Dates: start: 20090106, end: 20090101
  3. XENAZINE [Suspect]
     Indication: TOURETTE'S DISORDER
     Dosage: SEE IMAGE
     Route: 048
     Dates: start: 20091001
  4. ZYPREXA [Concomitant]
  5. LAMICTAL [Concomitant]
  6. HUMATROPE [Concomitant]
  7. MELATONIN [Concomitant]
  8. VIVARIN [Concomitant]
  9. RISPERDAL [Concomitant]
  10. CLONIDINE [Concomitant]
  11. LITHIUM CARBONATE [Concomitant]

REACTIONS (5)
  - AGITATION [None]
  - CONDITION AGGRAVATED [None]
  - HALLUCINATION [None]
  - IRRITABILITY [None]
  - PARANOIA [None]
